FAERS Safety Report 25953886 (Version 1)
Quarter: 2025Q4

REPORT INFORMATION
  Report Type: Report from Study
  Country: EU (occurrence: EU)
  Receive Date: 20251023
  Receipt Date: 20251023
  Transmission Date: 20260118
  Serious: Yes (Life-Threatening, Hospitalization, Other)
  Sender: MYLAN
  Company Number: EU-SANDOZ-SDZ2023DE039147

PATIENT
  Sex: Male

DRUGS (20)
  1. METHOTREXATE [Suspect]
     Active Substance: METHOTREXATE
     Indication: Product used for unknown indication
     Dosage: 15,0
  2. METHOTREXATE [Suspect]
     Active Substance: METHOTREXATE
     Dosage: 20,0
  3. METHOTREXATE [Suspect]
     Active Substance: METHOTREXATE
     Dosage: 20,0
  4. METHOTREXATE [Suspect]
     Active Substance: METHOTREXATE
     Dosage: 20,0
  5. METHOTREXATE [Suspect]
     Active Substance: METHOTREXATE
     Dosage: 20,0
  6. METHOTREXATE [Suspect]
     Active Substance: METHOTREXATE
     Dosage: 20,0
  7. RITUXIMAB [Suspect]
     Active Substance: RITUXIMAB
     Indication: Product used for unknown indication
     Dosage: UNK
  8. RITUXIMAB [Suspect]
     Active Substance: RITUXIMAB
     Indication: Product used for unknown indication
     Dosage: 5 MILLIGRAM
  9. RITUXIMAB [Suspect]
     Active Substance: RITUXIMAB
     Dosage: 5 MILLIGRAM
  10. ORENCIA [Suspect]
     Active Substance: ABATACEPT
     Indication: Product used for unknown indication
     Dosage: 125 MILLIGRAM
  11. ENBREL [Suspect]
     Active Substance: ETANERCEPT
     Indication: Product used for unknown indication
     Dosage: 50 MILLIGRAM
  12. TOCILIZUMAB [Suspect]
     Active Substance: TOCILIZUMAB
     Indication: Product used for unknown indication
     Dosage: 162 MILLIGRAM
  13. INFLIXIMAB [Suspect]
     Active Substance: INFLIXIMAB
     Indication: Product used for unknown indication
     Dosage: 200 MILLIGRAM
  14. XELJANZ [Suspect]
     Active Substance: TOFACITINIB CITRATE
     Indication: Product used for unknown indication
     Dosage: 5 MILLIGRAM
  15. OLUMIANT [Suspect]
     Active Substance: BARICITINIB
     Indication: Product used for unknown indication
     Dosage: 4 MILLIGRAM
  16. KEVZARA [Suspect]
     Active Substance: SARILUMAB
     Indication: Product used for unknown indication
     Dosage: 200 MILLIGRAM
  17. RINVOQ [Suspect]
     Active Substance: UPADACITINIB
     Indication: Product used for unknown indication
     Dosage: 15 MILLIGRAM
  18. RINVOQ [Suspect]
     Active Substance: UPADACITINIB
     Dosage: 15 MILLIGRAM
  19. RINVOQ [Suspect]
     Active Substance: UPADACITINIB
     Dosage: 15 MG
  20. ADALIMUMAB [Suspect]
     Active Substance: ADALIMUMAB
     Indication: Product used for unknown indication
     Dosage: 40 MILLIGRAM

REACTIONS (5)
  - Myelodysplastic syndrome unclassifiable [Not Recovered/Not Resolved]
  - Myelodysplastic syndrome [Not Recovered/Not Resolved]
  - Influenza like illness [Unknown]
  - Ecchymosis [Unknown]
  - Pruritus [Unknown]
